FAERS Safety Report 9072976 (Version 1)
Quarter: 2013Q1

REPORT INFORMATION
  Report Type: Spontaneous
  Country: DE (occurrence: DE)
  Receive Date: 20130129
  Receipt Date: 20130129
  Transmission Date: 20140127
  Serious: Yes (Hospitalization, Other)
  Sender: FDA-Public Use
  Company Number: DE-AMGEN-DEUSP2013005842

PATIENT
  Sex: Female

DRUGS (5)
  1. ENBREL [Suspect]
     Indication: RHEUMATOID ARTHRITIS
     Dosage: 25 MG, 2X/WEEK
     Dates: start: 20090803
  2. CORTISONE [Concomitant]
     Dosage: UNK UNK, UNK
  3. AZULFIDINE [Concomitant]
     Dosage: UNK UNK, UNK
  4. OMEPRAZOLE [Concomitant]
     Dosage: UNK UNK, UNK
  5. FOLSAN [Concomitant]
     Dosage: UNK UNK, UNK

REACTIONS (4)
  - Pain in extremity [Unknown]
  - Musculoskeletal stiffness [Unknown]
  - Joint injury [Unknown]
  - Joint injury [Unknown]
